FAERS Safety Report 6756718-9 (Version None)
Quarter: 2010Q2

REPORT INFORMATION
  Report Type: 
  Country: None (occurrence: None)
  Receive Date: 20100604
  Receipt Date: 20100525
  Transmission Date: 20101027
  Serious: Yes (Life-Threatening, Hospitalization)
  Sender: FDA-Public Use
  Company Number: DE-BRISTOL-MYERS SQUIBB COMPANY-15103211

PATIENT
  Age: 71 Year
  Sex: Female
  Weight: 75 kg

DRUGS (7)
  1. GLUCOPHAGE [Suspect]
     Indication: TYPE 2 DIABETES MELLITUS
     Dosage: COATED TABLET;FROM FEB2010-13MAY10;RESTARTED 500MG BID FROM 17MAY10
     Route: 048
     Dates: start: 20100201
  2. MARCUMAR [Suspect]
     Dosage: TAKEN 1TO2DF(DATES UNK);STOPPED FROM 14MAY10-16MAY-10;RESUMED 17MAY10(3MG)/D,1 DF,1DF/WK 1DF=0.5TAB
     Route: 048
     Dates: start: 20100101
  3. METOPROLOL SUCCINATE [Concomitant]
     Dosage: 1DF = 47.5(UNITS NOT SPECIFIED)
  4. BLOPRESS PLUS [Concomitant]
     Dosage: 1 DF = 16MG/12.5MG(0.5 DF DAILY)
  5. TORASEMIDE [Concomitant]
     Dosage: 1DF=0.5DF
     Dates: end: 20100511
  6. NOVODIGAL [Concomitant]
     Route: 048
     Dates: end: 20100511
  7. LEVOTHYROXINE SODIUM [Concomitant]
     Dosage: 1DF = 75 (UNITS NOT SPECIFIED)
     Route: 048

REACTIONS (2)
  - EPISTAXIS [None]
  - INTERNATIONAL NORMALISED RATIO INCREASED [None]
